FAERS Safety Report 17148975 (Version 2)
Quarter: 2020Q1

REPORT INFORMATION
  Report Type: Spontaneous
  Country: HU (occurrence: HU)
  Receive Date: 20191213
  Receipt Date: 20200312
  Transmission Date: 20200409
  Serious: Yes (Other)
  Sender: FDA-Public Use
  Company Number: HU-TERSERA THERAPEUTICS LLC-2019TRS002855

PATIENT

DRUGS (3)
  1. LETROZOLE. [Suspect]
     Active Substance: LETROZOLE
     Indication: BREAST CANCER MALE
     Dosage: UNK
     Route: 065
     Dates: start: 20180725
  2. PALBOCICLIB [Suspect]
     Active Substance: PALBOCICLIB
     Indication: BREAST CANCER MALE
     Dosage: UNK
     Route: 065
     Dates: start: 20180725
  3. GOSERELIN [Suspect]
     Active Substance: GOSERELIN
     Indication: BREAST CANCER MALE
     Dosage: UNK
     Route: 058

REACTIONS (4)
  - Product use issue [Unknown]
  - Neutropenia [Unknown]
  - Anaemia [Unknown]
  - Off label use [Unknown]
